FAERS Safety Report 20091303 (Version 2)
Quarter: 2022Q1

REPORT INFORMATION
  Report Type: Other
  Country: CN (occurrence: CN)
  Receive Date: 20211119
  Receipt Date: 20220104
  Transmission Date: 20220423
  Serious: Yes (Hospitalization, Other)
  Sender: FDA-Public Use
  Company Number: CN-002147023-NVSC2020CN159751

PATIENT
  Age: 47 Year
  Sex: Male
  Weight: 58 kg

DRUGS (15)
  1. RANIBIZUMAB [Suspect]
     Active Substance: RANIBIZUMAB
     Indication: Diabetic retinal oedema
     Dosage: 0.05 OT
     Route: 065
     Dates: start: 20200318, end: 20200318
  2. RANIBIZUMAB [Suspect]
     Active Substance: RANIBIZUMAB
     Dosage: 0.05 OT
     Route: 065
     Dates: start: 20200513, end: 20200513
  3. RANIBIZUMAB [Suspect]
     Active Substance: RANIBIZUMAB
     Dosage: 0.15 ML/0.15 MG OF COMPACSEIL
     Route: 065
     Dates: start: 20201210
  4. RANIBIZUMAB [Suspect]
     Active Substance: RANIBIZUMAB
     Dosage: 0.05 ML
     Route: 065
     Dates: start: 20200318
  5. RANIBIZUMAB [Suspect]
     Active Substance: RANIBIZUMAB
     Dosage: 0.05 ML
     Route: 065
     Dates: start: 20200513
  6. GLIMEPIRIDE [Concomitant]
     Active Substance: GLIMEPIRIDE
     Indication: Type 2 diabetes mellitus
     Dosage: 1 OT
     Route: 048
     Dates: start: 202002
  7. METFORMIN [Concomitant]
     Active Substance: METFORMIN HYDROCHLORIDE
     Indication: Type 2 diabetes mellitus
     Dosage: 1 OT
     Dates: start: 202002
  8. GLUCOBAY [Concomitant]
     Active Substance: ACARBOSE
     Indication: Type 2 diabetes mellitus
     Dosage: 2 OT
     Route: 048
     Dates: start: 202002
  9. VALSARTAN [Concomitant]
     Active Substance: VALSARTAN
     Indication: Hypertension
     Dosage: 1 OT
     Route: 048
     Dates: start: 2018
  10. NITRENDIPINE [Concomitant]
     Active Substance: NITRENDIPINE
     Indication: Hypertension
     Dosage: 1 (UNIT NOT REPORTED)
     Route: 048
     Dates: start: 2018
  11. CEFUROXIME SODIUM [Concomitant]
     Active Substance: CEFUROXIME SODIUM
     Indication: Vitreous haemorrhage
     Dosage: 1.5 OT, IVGTT
     Route: 065
     Dates: start: 20200518, end: 20200518
  12. AMINOMETHYLBENZOIC ACID [Concomitant]
     Active Substance: AMINOMETHYLBENZOIC ACID
     Indication: Vitreous haemorrhage
     Dosage: 300 OT, IVGTT
     Route: 065
     Dates: start: 20200518, end: 20200518
  13. CARBAZOCHROME [Concomitant]
     Active Substance: CARBAZOCHROME
     Indication: Vitreous haemorrhage
     Dosage: 5 OT
     Route: 048
     Dates: start: 20200518, end: 20200518
  14. DEXAMETHASONE SODIUM PHOSPHATE [Concomitant]
     Active Substance: DEXAMETHASONE SODIUM PHOSPHATE
     Indication: Antiinflammatory therapy
     Dosage: 0.5 ML
     Route: 065
     Dates: start: 20201215
  15. DEXAMETHASONE [Concomitant]
     Active Substance: DEXAMETHASONE

REACTIONS (6)
  - Vitreous haemorrhage [Recovered/Resolved]
  - Ocular hyperaemia [Recovered/Resolved]
  - Conjunctival haemorrhage [Unknown]
  - Cataract [Not Recovered/Not Resolved]
  - Conjunctival hyperaemia [Not Recovered/Not Resolved]
  - Sensation of foreign body [Recovered/Resolved]

NARRATIVE: CASE EVENT DATE: 20200318
